FAERS Safety Report 5117369-5 (Version None)
Quarter: 2006Q3

REPORT INFORMATION
  Report Type: 
  Country: None (occurrence: None)
  Receive Date: 20060926
  Receipt Date: 20060906
  Transmission Date: 20061208
  Serious: Yes (Other)
  Sender: FDA-Public Use
  Company Number: US200603004097

PATIENT
  Age: 96 Year
  Sex: Female

DRUGS (4)
  1. FORTEO [Suspect]
     Indication: OSTEOPOROSIS
     Dosage: SEE IMAGE
     Dates: start: 20050101, end: 20060301
  2. FORTEO [Suspect]
     Indication: OSTEOPOROSIS
     Dosage: SEE IMAGE
     Dates: start: 20060717
  3. FORTEO [Concomitant]
  4. CALCIUM GLUCONATE [Concomitant]

REACTIONS (3)
  - BONE DENSITY DECREASED [None]
  - HYPERCALCAEMIA [None]
  - PHARMACEUTICAL PRODUCT COMPLAINT [None]
